FAERS Safety Report 17743711 (Version 7)
Quarter: 2020Q3

REPORT INFORMATION
  Report Type: Report from Study
  Country: DE (occurrence: DE)
  Receive Date: 20200505
  Receipt Date: 20200714
  Transmission Date: 20201102
  Serious: Yes (Hospitalization)
  Sender: FDA-Public Use
  Company Number: DE-ROCHE-2560413

PATIENT
  Age: 20 Year
  Sex: Female
  Weight: 61 kg

DRUGS (18)
  1. OCRELIZUMAB. [Suspect]
     Active Substance: OCRELIZUMAB
     Dosage: VISIT 8?DOSE: 600
     Route: 042
     Dates: start: 20191107
  2. ORTHO EVRA [Concomitant]
     Active Substance: ETHINYL ESTRADIOL\NORELGESTROMIN
     Dosage: 203
     Route: 062
  3. REVINTY ELLIPTA [Concomitant]
     Active Substance: FLUTICASONE FUROATE\VILANTEROL TRIFENATATE
     Indication: COUGH
     Dosage: PUFF
     Route: 048
     Dates: start: 20191127
  4. OCRELIZUMAB. [Suspect]
     Active Substance: OCRELIZUMAB
     Indication: RELAPSING-REMITTING MULTIPLE SCLEROSIS
     Dosage: TWO 300 MG INFUSIONS (INFUSION LENGTH=2.5 HOURS) ON DAYS 1 AND 15, FOLLOWED BY ONE 600 MG INFUSION D
     Route: 042
     Dates: start: 20180201
  5. METHYLPREDNISOLONE. [Suspect]
     Active Substance: METHYLPREDNISOLONE
     Route: 042
     Dates: start: 20191107, end: 20191107
  6. PARACETAMOL [Concomitant]
     Active Substance: ACETAMINOPHEN
     Indication: PREMEDICATION
     Dosage: 01/FEB/2018, 15/FEB/2018, 05/JUL/2018, 13/DEC/2018, 23/MAY/2019, 07/NOV/2019
     Route: 042
  7. HISTAKUT [Concomitant]
     Active Substance: DIMETHINDENE MALEATE
     Route: 042
     Dates: start: 20200507, end: 20200507
  8. OCRELIZUMAB. [Suspect]
     Active Substance: OCRELIZUMAB
     Dosage: VISIT 3
     Route: 042
     Dates: start: 20180215
  9. OCRELIZUMAB. [Suspect]
     Active Substance: OCRELIZUMAB
     Dosage: VISIT 6
     Route: 042
     Dates: start: 20181213
  10. OCRELIZUMAB. [Suspect]
     Active Substance: OCRELIZUMAB
     Dosage: VISIT 7
     Route: 042
     Dates: start: 20190523
  11. METHYLPREDNISOLONE. [Suspect]
     Active Substance: METHYLPREDNISOLONE
     Indication: PREMEDICATION
     Dosage: 15/FEB/2018, 05/JUL/2018, 23/MAY/2019,
     Route: 042
     Dates: start: 20180201
  12. CIMETIDIN [Concomitant]
     Route: 042
     Dates: start: 20200507, end: 20200507
  13. RANITIC [Concomitant]
     Active Substance: RANITIDINE HYDROCHLORIDE
     Indication: PREMEDICATION
     Dosage: 01/FEB/2018, 15/FEB/2018, 05/JUL/2018, 13/DEC/2018, 23/MAY/2019, 07/NOV/2019
     Route: 042
  14. PREDNISONE. [Concomitant]
     Active Substance: PREDNISONE
     Route: 042
     Dates: start: 20200507
  15. OCRELIZUMAB. [Suspect]
     Active Substance: OCRELIZUMAB
     Dosage: VISIT 5
     Route: 042
     Dates: start: 20180705
  16. TAVEGIL [Concomitant]
     Active Substance: CLEMASTINE FUMARATE
     Indication: PREMEDICATION
     Dosage: ONCE BEFORE INFUSION?15/FEB/2018, 05/JUL/2018, 13/DEC/2018, 23/MAY/2019, 07/NOV/2019
     Route: 042
     Dates: start: 20180201, end: 20180201
  17. SWINGO [Concomitant]
     Active Substance: ETHINYL ESTRADIOL\LEVONORGESTREL
     Route: 048
  18. PREDNISONE. [Concomitant]
     Active Substance: PREDNISONE
     Dates: start: 20181013, end: 20181013

REACTIONS (1)
  - Benign breast neoplasm [Recovered/Resolved]

NARRATIVE: CASE EVENT DATE: 202002
